FAERS Safety Report 6678593-3 (Version None)
Quarter: 2010Q2

REPORT INFORMATION
  Report Type: 
  Country: None (occurrence: None)
  Receive Date: 20100412
  Receipt Date: 20100412
  Transmission Date: 20101027
  Serious: Yes (Life-Threatening, Disabling)
  Sender: FDA-Public Use
  Company Number: None

PATIENT
  Age: 51 Year
  Sex: Male
  Weight: 101 kg

DRUGS (8)
  1. ADENOSINE [Suspect]
     Indication: VASODILATION PROCEDURE
     Dosage: 24 MCG 3 DOSES Q 3 MIN INTRACORONARY
     Route: 022
     Dates: start: 20100319, end: 20100319
  2. VERSED [Concomitant]
  3. ANGIOMAX [Concomitant]
  4. BENADRYL [Concomitant]
  5. MORPHINE [Concomitant]
  6. AMINOPHYLLINE [Concomitant]
  7. PLAVIX [Concomitant]
  8. ASPIRIN [Concomitant]

REACTIONS (3)
  - BLOOD PRESSURE SYSTOLIC INCREASED [None]
  - CHEST DISCOMFORT [None]
  - CHEST PAIN [None]
